FAERS Safety Report 8992026 (Version 1)
Quarter: 2012Q4

REPORT INFORMATION
  Report Type: 
  Country: US (occurrence: US)
  Receive Date: 20121231
  Receipt Date: 20121231
  Transmission Date: 20130627
  Serious: Yes (Death, Congenital Anomaly)
  Sender: FDA-Public Use
  Company Number: US-AMGEN-USASP2012083744

PATIENT

DRUGS (1)
  1. ENBREL [Suspect]
     Dosage: 50 mg, qwk
     Route: 064
     Dates: start: 20110415, end: 201204

REACTIONS (1)
  - Apert^s syndrome [Fatal]
